FAERS Safety Report 8585763 (Version 4)
Quarter: 2012Q4

REPORT INFORMATION
  Report Type: 
  Country: US (occurrence: US)
  Receive Date: 20120530
  Receipt Date: 20121029
  Transmission Date: 20130627
  Serious: Yes (Hospitalization, Other)
  Sender: FDA-Public Use
  Company Number: US-PFIZER INC-2012127231

PATIENT
  Age: 88 Year
  Sex: Male
  Weight: 70.3 kg

DRUGS (4)
  1. XALATAN [Suspect]
     Indication: GLAUCOMA
     Dosage: 1 Gtt, 1x/day, each eye (qhs)
     Route: 047
     Dates: start: 200309
  2. XALATAN [Suspect]
     Indication: PRIMARY OPEN ANGLE GLAUCOMA
     Dosage: UNK, 1x/day
     Route: 047
  3. CADUET [Suspect]
     Indication: BLOOD PRESSURE HIGH
     Dosage: 10/80 mg, 1x/day
     Route: 048
     Dates: start: 2011, end: 201204
  4. CARDURA [Concomitant]
     Dosage: UNK

REACTIONS (4)
  - Hearing impaired [Unknown]
  - Gallbladder disorder [Unknown]
  - Blood glucose increased [Recovering/Resolving]
  - Oedema peripheral [Recovering/Resolving]
